FAERS Safety Report 25776048 (Version 2)
Quarter: 2025Q3

REPORT INFORMATION
  Report Type: Spontaneous
  Country: JP (occurrence: JP)
  Receive Date: 20250909
  Receipt Date: 20250923
  Transmission Date: 20251021
  Serious: Yes (Other)
  Sender: ALKEM
  Company Number: None

PATIENT
  Age: 15 Year
  Sex: Female

DRUGS (7)
  1. GABAPENTIN [Suspect]
     Active Substance: GABAPENTIN
     Indication: Paroxysmal sympathetic hyperactivity
     Dosage: 5 MILLIGRAM/KILOGRAM, QD
     Route: 065
  2. GABAPENTIN [Suspect]
     Active Substance: GABAPENTIN
     Indication: Disease recurrence
     Dosage: 40 MILLIGRAM/KILOGRAM, QD (INCREASED DOSE)
     Route: 065
  3. GABAPENTIN [Suspect]
     Active Substance: GABAPENTIN
     Dosage: 30 MILLIGRAM/KILOGRAM, QD (DECREASED DOSE)
     Route: 065
  4. BACLOFEN [Concomitant]
     Active Substance: BACLOFEN
     Indication: Product used for unknown indication
     Route: 037
  5. DIAZEPAM [Concomitant]
     Active Substance: DIAZEPAM
     Indication: Paroxysmal sympathetic hyperactivity
     Route: 065
  6. LEVETIRACETAM [Concomitant]
     Active Substance: LEVETIRACETAM
     Indication: Epilepsy
     Route: 065
  7. PHENOBARBITAL [Concomitant]
     Active Substance: PHENOBARBITAL
     Indication: Epilepsy
     Route: 065

REACTIONS (2)
  - Oxygen saturation decreased [Unknown]
  - Salivary hypersecretion [Unknown]
